FAERS Safety Report 4813064-8 (Version None)
Quarter: 2005Q4

REPORT INFORMATION
  Report Type: 
  Country: None (occurrence: None)
  Receive Date: 20051028
  Receipt Date: 20051018
  Transmission Date: 20060501
  Serious: Yes (Other)
  Sender: FDA-Public Use
  Company Number: US-JNJFOC-20050601406

PATIENT
  Sex: Female
  Weight: 90.72 kg

DRUGS (10)
  1. REMICADE [Suspect]
     Indication: RHEUMATOID ARTHRITIS
     Dosage: MAY OR JUNE
     Route: 042
  2. NORVASC [Concomitant]
     Indication: BLOOD PRESSURE
  3. NITROGLYCERIN [Concomitant]
  4. LASIX [Concomitant]
  5. ACTOS [Concomitant]
  6. ENALAPRIL [Concomitant]
  7. METOPROLOL [Concomitant]
  8. PLAVIX [Concomitant]
  9. ASPIRIN [Concomitant]
  10. AMARYL [Concomitant]

REACTIONS (4)
  - CARDIAC FAILURE CONGESTIVE [None]
  - CORONARY ARTERY DISEASE [None]
  - MYOCARDIAL INFARCTION [None]
  - RENAL FAILURE [None]
